FAERS Safety Report 6840004-2 (Version None)
Quarter: 2010Q3

REPORT INFORMATION
  Report Type: 
  Country: None (occurrence: None)
  Receive Date: 20100714
  Receipt Date: 20100706
  Transmission Date: 20110219
  Serious: Yes (Death, Hospitalization)
  Sender: FDA-Public Use
  Company Number: ES-ROCHE-674506

PATIENT
  Sex: Female

DRUGS (8)
  1. MYCOPHENOLATE MOFETIL [Suspect]
     Route: 048
     Dates: start: 20090507, end: 20091109
  2. MYCOPHENOLATE MOFETIL [Suspect]
     Route: 048
     Dates: end: 20100510
  3. BELATACEPT [Suspect]
     Indication: LIVER TRANSPLANT
     Dosage: DOSE BLINDED
     Route: 042
     Dates: start: 20090506
  4. BELATACEPT [Suspect]
     Route: 042
     Dates: end: 20100510
  5. PREDNISONE [Suspect]
     Indication: LIVER TRANSPLANT
     Route: 048
     Dates: start: 20090506
  6. SEPTRIN [Concomitant]
     Dates: start: 20090501
  7. RIBAVIRIN [Concomitant]
     Dates: start: 20090701
  8. PEGINTERFERON ALFA-2A [Concomitant]
     Dates: start: 20090701

REACTIONS (3)
  - CYTOMEGALOVIRUS COLITIS [None]
  - DEATH [None]
  - PNEUMONIA [None]
